FAERS Safety Report 17199506 (Version 3)
Quarter: 2020Q1

REPORT INFORMATION
  Report Type: Spontaneous
  Country: DE (occurrence: DE)
  Receive Date: 20191226
  Receipt Date: 20200225
  Transmission Date: 20200409
  Serious: Yes (Death, Hospitalization)
  Sender: FDA-Public Use
  Company Number: DE-ROCHE-2505539

PATIENT
  Age: 38 Year
  Sex: Female

DRUGS (13)
  1. OCREVUS [Suspect]
     Active Substance: OCRELIZUMAB
     Indication: PROGRESSIVE MULTIPLE SCLEROSIS
     Route: 065
     Dates: start: 201811, end: 20190527
  2. BIOTIN [Concomitant]
     Active Substance: BIOTIN
     Route: 065
  3. L-THYROXIN [LEVOTHYROXINE] [Concomitant]
     Active Substance: LEVOTHYROXINE SODIUM
     Route: 065
  4. BISOPROLOL [Concomitant]
     Active Substance: BISOPROLOL
     Route: 065
  5. SPASMEX [TROSPIUM CHLORIDE] [Concomitant]
     Route: 065
  6. MAGNESIUM [Concomitant]
     Active Substance: MAGNESIUM
     Route: 065
  7. CYMBALTA [Concomitant]
     Active Substance: DULOXETINE HYDROCHLORIDE
  8. VITAMIN B7 [Concomitant]
  9. VITAMIN D3 [Concomitant]
     Active Substance: CHOLECALCIFEROL
     Route: 065
  10. VITAMIN B12 [Concomitant]
     Active Substance: CYANOCOBALAMIN
  11. HALDOL [Concomitant]
     Active Substance: HALOPERIDOL
  12. DULOXETINE. [Suspect]
     Active Substance: DULOXETINE
     Indication: DRUG THERAPY
     Route: 065
     Dates: end: 201906
  13. QUETIAPINE. [Suspect]
     Active Substance: QUETIAPINE
     Indication: DRUG THERAPY
     Route: 065
     Dates: end: 201906

REACTIONS (4)
  - Psychotic disorder [Recovering/Resolving]
  - Death [Fatal]
  - Delusion [Recovering/Resolving]
  - Gait disturbance [Unknown]

NARRATIVE: CASE EVENT DATE: 201901
